FAERS Safety Report 13102330 (Version 11)
Quarter: 2019Q2

REPORT INFORMATION
  Report Type: Report from Study
  Country: DE (occurrence: DE)
  Receive Date: 20170110
  Receipt Date: 20190528
  Transmission Date: 20190711
  Serious: Yes (Hospitalization, Other)
  Sender: FDA-Public Use
  Company Number: DE-TAKEDA-2017TUS000444

PATIENT
  Age: 54 Year
  Sex: Male
  Weight: 92 kg

DRUGS (36)
  1. TOREM [Concomitant]
     Active Substance: TORSEMIDE
     Indication: DIURETIC THERAPY
  2. SIMVASTATIN. [Concomitant]
     Active Substance: SIMVASTATIN
     Indication: BLOOD CHOLESTEROL
  3. AMPHOTERICIN [Concomitant]
     Active Substance: AMPHOTERICIN B
     Dosage: UNK
  4. VITAMIN D3 [Concomitant]
     Active Substance: CHOLECALCIFEROL
     Dosage: 1000 IU, QD
  5. KALINOR RETARD P [Concomitant]
     Active Substance: POTASSIUM CHLORIDE
     Dosage: UNK UNK, QD
  6. PENTACARINAT [Concomitant]
     Active Substance: PENTAMIDINE ISETHIONATE
     Dosage: UNK UNK, 4/WEEK
     Route: 055
     Dates: start: 20170519
  7. TORASEMIDE [Concomitant]
     Active Substance: TORSEMIDE
     Indication: DIURETIC THERAPY
  8. TOREM [Concomitant]
     Active Substance: TORSEMIDE
     Indication: DIURETIC THERAPY
     Dosage: 15 MILLIGRAM, QD
  9. SIMVASTATIN. [Concomitant]
     Active Substance: SIMVASTATIN
     Indication: BLOOD CHOLESTEROL INCREASED
  10. MARCUMAR [Concomitant]
     Active Substance: PHENPROCOUMON
     Indication: ANTICOAGULANT THERAPY
  11. HYDROCHLOROTHIAZIDE W/TRIAMTERENE [Concomitant]
     Active Substance: HYDROCHLOROTHIAZIDE\TRIAMTERENE
     Dosage: 100+50, MG, QD
  12. PANTOPRAZOLE [Concomitant]
     Active Substance: PANTOPRAZOLE
     Dosage: 40 MILLIGRAM, BID
  13. TAVEGIL [Concomitant]
     Active Substance: CLEMASTINE FUMARATE
     Dosage: UNK
  14. CETIRIZINE [Concomitant]
     Active Substance: CETIRIZINE HYDROCHLORIDE
     Dosage: UNK
  15. CYCLOPHOSPHAMIDE. [Concomitant]
     Active Substance: CYCLOPHOSPHAMIDE
     Indication: GLOMERULONEPHRITIS
     Dosage: 200 MILLIGRAM
     Dates: start: 20190513
  16. VEDOLIZUMAB [Suspect]
     Active Substance: VEDOLIZUMAB
     Indication: COLITIS ULCERATIVE
     Dosage: 300 MILLIGRAM, MONTHLY
     Route: 042
  17. COTRIMOXAZOL [Suspect]
     Active Substance: SULFAMETHOXAZOLE\TRIMETHOPRIM
     Indication: PRODUCT USED FOR UNKNOWN INDICATION
     Dosage: 480 MILLIGRAM, QD
     Route: 065
     Dates: start: 20170418, end: 20170519
  18. SIMVASTATIN. [Concomitant]
     Active Substance: SIMVASTATIN
     Indication: BLOOD CHOLESTEROL INCREASED
     Dosage: 40 MILLIGRAM, QD
  19. PREDNISOLONE. [Concomitant]
     Active Substance: PREDNISOLONE
     Indication: COLITIS ULCERATIVE
     Dosage: 25 MILLIGRAM, QD
  20. PREDNISOLONE. [Concomitant]
     Active Substance: PREDNISOLONE
     Dosage: 20 MILLIGRAM, QD
     Dates: start: 20170520, end: 201705
  21. ADVANTAN [Concomitant]
     Active Substance: METHYLPREDNISOLONE ACEPONATE
     Dosage: UNK
  22. TORASEMIDE [Concomitant]
     Active Substance: TORSEMIDE
     Indication: DIURETIC THERAPY
     Dosage: 20 MILLIGRAM, QD
  23. RAMIPRIL. [Concomitant]
     Active Substance: RAMIPRIL
     Indication: HYPERTENSION
     Dosage: 5 MILLIGRAM, QD
  24. PREDNISOLONE. [Concomitant]
     Active Substance: PREDNISOLONE
     Dosage: 10 MILLIGRAM, QD
     Dates: start: 20170523
  25. CANDESARTAN. [Concomitant]
     Active Substance: CANDESARTAN
     Dosage: 8 MILLIGRAM, QD
  26. MAGNESIUM [Concomitant]
     Active Substance: MAGNESIUM
     Dosage: UNK
  27. PARACETAMOL [Concomitant]
     Active Substance: ACETAMINOPHEN
     Dosage: UNK
  28. SITAGLIPTIN [Concomitant]
     Active Substance: SITAGLIPTIN
     Dosage: 50 MILLIGRAM, QD
  29. PALLADON [Concomitant]
     Active Substance: HYDROMORPHONE
     Dosage: 4 MILLIGRAM
  30. VEDOLIZUMAB [Suspect]
     Active Substance: VEDOLIZUMAB
     Dosage: 300 MILLIGRAM, MONTHLY
     Route: 042
  31. PREDNISOLONE. [Concomitant]
     Active Substance: PREDNISOLONE
     Dosage: 50 MILLIGRAM
     Dates: start: 20190513
  32. VEDOLIZUMAB [Suspect]
     Active Substance: VEDOLIZUMAB
     Dosage: 300 MILLIGRAM, MONTHLY
     Route: 042
  33. MARCUMAR [Concomitant]
     Active Substance: PHENPROCOUMON
     Indication: ANTICOAGULANT THERAPY
     Dosage: UNK
  34. MEZAVANT [Concomitant]
     Active Substance: MESALAMINE
     Indication: COLITIS ULCERATIVE
     Dosage: 2.4 GRAM, QD
  35. KEPINOL [Concomitant]
     Active Substance: SULFAMETHOXAZOLE\TRIMETHOPRIM
     Dosage: 480 MG, QD
  36. RANITIC [Concomitant]
     Active Substance: RANITIDINE HYDROCHLORIDE
     Dosage: 300 MILLIGRAM, QD

REACTIONS (12)
  - Fatigue [Unknown]
  - Glomerulonephritis membranous [Recovered/Resolved]
  - Stevens-Johnson syndrome [Recovered/Resolved]
  - Colitis ulcerative [Recovered/Resolved]
  - Erythema multiforme [Recovered/Resolved]
  - Chills [Recovered/Resolved]
  - Infection [Recovered/Resolved]
  - Night sweats [Unknown]
  - General physical health deterioration [Recovered/Resolved]
  - Disease recurrence [Recovered/Resolved]
  - Fluid overload [Recovered/Resolved]
  - Disturbance in attention [Unknown]

NARRATIVE: CASE EVENT DATE: 20161228
